FAERS Safety Report 24364499 (Version 7)
Quarter: 2025Q2

REPORT INFORMATION
  Report Type: Report from Study
  Country: DE (occurrence: DE)
  Receive Date: 20240926
  Receipt Date: 20250529
  Transmission Date: 20250717
  Serious: Yes (Hospitalization, Other)
  Sender: TAKEDA
  Company Number: DE-TAKEDA-2023TUS029341

PATIENT
  Age: 55 Year
  Sex: Male

DRUGS (36)
  1. TEDUGLUTIDE [Suspect]
     Active Substance: TEDUGLUTIDE
     Indication: Short-bowel syndrome
     Dosage: 2.5 MILLIGRAM, QD
     Dates: start: 20211102, end: 20220927
  2. TEDUGLUTIDE [Suspect]
     Active Substance: TEDUGLUTIDE
     Dosage: 5 MILLIGRAM, QD
     Dates: start: 20220928, end: 20230818
  3. TEDUGLUTIDE [Suspect]
     Active Substance: TEDUGLUTIDE
     Dosage: 2.5 MILLIGRAM, QD
     Dates: start: 20231101
  4. TEDUGLUTIDE [Suspect]
     Active Substance: TEDUGLUTIDE
  5. VITAMIN B12 [Concomitant]
     Active Substance: CYANOCOBALAMIN
     Indication: Vitamin B12 deficiency
     Dosage: 1000 MICROGRAM, 1/WEEK
     Dates: start: 20220629, end: 202207
  6. VITAMIN B12 [Concomitant]
     Active Substance: CYANOCOBALAMIN
     Dosage: 1000 MICROGRAM, MONTHLY
     Dates: start: 202207
  7. CHOLECALCIFEROL [Concomitant]
     Active Substance: CHOLECALCIFEROL
     Indication: Vitamin D deficiency
     Dosage: 20000 INTERNATIONAL UNIT, 1/WEEK
     Dates: start: 20220629
  8. LEGANTO [Concomitant]
     Active Substance: ROTIGOTINE
     Indication: Restless legs syndrome
     Dosage: 9 MILLIGRAM, BID
     Route: 061
  9. IMODIUM [Concomitant]
     Active Substance: LOPERAMIDE HYDROCHLORIDE
     Indication: Prophylaxis
     Dosage: UNK UNK, QID
  10. STELARA [Concomitant]
     Active Substance: USTEKINUMAB
     Indication: Crohn^s disease
  11. Gabapentin stada [Concomitant]
     Indication: Restless legs syndrome
     Dosage: 900 MILLIGRAM, TID
  12. NEUPRO [Concomitant]
     Active Substance: ROTIGOTINE
     Indication: Restless legs syndrome
     Dosage: 8 MILLIGRAM, TID
  13. Serasept 1 [Concomitant]
     Indication: Peripheral swelling
     Dates: start: 20240826, end: 20240910
  14. ZINC [Concomitant]
     Active Substance: ZINC
     Indication: Mineral supplementation
     Dosage: 75 MILLIGRAM, BID
  15. CHOLECALCIFEROL [Concomitant]
     Active Substance: CHOLECALCIFEROL
     Indication: Vitamin supplementation
     Dosage: 0.5 MILLIGRAM, QD
  16. Selenase [Concomitant]
     Indication: Mineral supplementation
     Dosage: UNK UNK, QD
  17. Famotidin stada [Concomitant]
     Indication: Prophylaxis
     Dosage: 900 MILLIGRAM, TID
  18. DESLORATADINE [Concomitant]
     Active Substance: DESLORATADINE
     Indication: Hypersensitivity
     Dosage: 5 MILLIGRAM, QD
  19. ACETAMINOPHEN [Concomitant]
     Active Substance: ACETAMINOPHEN
     Indication: Pain
     Dosage: 1500 MILLIGRAM, TID
  20. PANTOPRAZOLE [Concomitant]
     Active Substance: PANTOPRAZOLE
     Indication: Short-bowel syndrome
     Dosage: 40 MILLIGRAM, BID
     Dates: start: 2021
  21. POTASSIUM CHLORIDE [Concomitant]
     Active Substance: POTASSIUM CHLORIDE
     Indication: Hypokalaemia
     Dosage: 600 MILLIGRAM, BID
     Dates: start: 202202, end: 202207
  22. FOLIC ACID [Concomitant]
     Active Substance: FOLIC ACID
     Indication: Folate deficiency
     Dosage: 5 MILLIGRAM, QD
     Dates: start: 20220629
  23. CHOLECALCIFEROL [Concomitant]
     Active Substance: CHOLECALCIFEROL
     Indication: Vitamin supplementation
     Dosage: 1000 INTERNATIONAL UNIT, BID
     Dates: start: 202408
  24. VITAMIN B6 [Concomitant]
     Active Substance: PYRIDOXINE HYDROCHLORIDE
     Indication: Vitamin B6 deficiency
     Dosage: 40 MILLIGRAM, BID
     Dates: start: 20220713
  25. Calciumcarbonat [Concomitant]
     Indication: Mineral supplementation
     Dosage: 1250 MILLIGRAM, QD
     Dates: start: 202408
  26. PIPERACILLIN SODIUM\TAZOBACTAM SODIUM [Concomitant]
     Active Substance: PIPERACILLIN SODIUM\TAZOBACTAM SODIUM
     Indication: Antibiotic therapy
     Dates: start: 20240826, end: 20240905
  27. CEFUROXIME [Concomitant]
     Active Substance: CEFUROXIME
     Indication: Product used for unknown indication
  28. PREDNISOLONE [Concomitant]
     Active Substance: PREDNISOLONE
     Indication: Product used for unknown indication
     Dosage: 50 MILLIGRAM, QD
     Dates: start: 20240826, end: 20240910
  29. PREDNISOLONE [Concomitant]
     Active Substance: PREDNISOLONE
     Dosage: 20 MILLIGRAM, BID
     Dates: start: 20240911, end: 20240917
  30. PREDNISOLONE [Concomitant]
     Active Substance: PREDNISOLONE
     Dosage: 15 MILLIGRAM, QD
     Dates: start: 20240918, end: 20240925
  31. PREDNISOLONE [Concomitant]
     Active Substance: PREDNISOLONE
     Dosage: 20 MILLIGRAM, QD
     Dates: start: 20240926, end: 20240930
  32. PREDNISOLONE [Concomitant]
     Active Substance: PREDNISOLONE
     Dosage: 10 MILLIGRAM, QD
     Dates: start: 20241001, end: 20241005
  33. PREDNISOLONE [Concomitant]
     Active Substance: PREDNISOLONE
     Dosage: 5 MILLIGRAM, QD
     Dates: start: 20241006, end: 20241010
  34. PREDNISOLONE [Concomitant]
     Active Substance: PREDNISOLONE
     Dosage: 2.5 MILLIGRAM, QD
     Dates: start: 20241011, end: 20241015
  35. FRAGMIN [Concomitant]
     Active Substance: DALTEPARIN SODIUM
     Indication: Prophylaxis
     Dosage: 2500 INTERNATIONAL UNIT, QD
  36. POTASSIUM CHLORIDE [Concomitant]
     Active Substance: POTASSIUM CHLORIDE
     Indication: Hypokalaemia
     Dosage: 600 MILLIGRAM, QID
     Dates: start: 202207

REACTIONS (4)
  - Peripheral swelling [Recovered/Resolved]
  - Hyperaldosteronism [Not Recovered/Not Resolved]
  - Swelling [Recovered/Resolved]
  - Joint dislocation pathological [Not Recovered/Not Resolved]

NARRATIVE: CASE EVENT DATE: 20220101
